FAERS Safety Report 24713609 (Version 2)
Quarter: 2025Q1

REPORT INFORMATION
  Report Type: Spontaneous
  Country: US (occurrence: US)
  Receive Date: 20241209
  Receipt Date: 20250307
  Transmission Date: 20250409
  Serious: No
  Sender: SANOFI AVENTIS
  Company Number: US-SA-2024SA362808

PATIENT
  Age: 54 Year
  Sex: Female
  Weight: 54.55 kg

DRUGS (1)
  1. DUPIXENT [Suspect]
     Active Substance: DUPILUMAB
     Indication: Dermatitis atopic
     Dosage: 300 MG, QOW
     Route: 058
     Dates: start: 202410

REACTIONS (5)
  - Skin haemorrhage [Not Recovered/Not Resolved]
  - Scratch [Not Recovered/Not Resolved]
  - Pruritus [Not Recovered/Not Resolved]
  - Oral herpes [Not Recovered/Not Resolved]
  - Drug ineffective [Unknown]

NARRATIVE: CASE EVENT DATE: 20240101
